FAERS Safety Report 12372835 (Version 1)
Quarter: 2016Q2

REPORT INFORMATION
  Report Type: Report from Study
  Country: US (occurrence: US)
  Receive Date: 20160516
  Receipt Date: 20160516
  Transmission Date: 20160815
  Serious: Yes (Hospitalization)
  Sender: FDA-Public Use
  Company Number: US-MALLINCKRODT-T201505144

PATIENT
  Age: 39 Year
  Sex: Female
  Weight: 94 kg

DRUGS (23)
  1. PROAIR HFA [Concomitant]
     Active Substance: ALBUTEROL SULFATE
     Dosage: PRN
  2. VITAMIN D [Concomitant]
     Active Substance: CHOLECALCIFEROL
  3. CYCLOBENZAPRINE [Concomitant]
     Active Substance: CYCLOBENZAPRINE
  4. CALCIUM [Concomitant]
     Active Substance: CALCIUM
  5. REBIF [Concomitant]
     Active Substance: INTERFERON BETA-1A
  6. REPOSITORY CORTICOTROPIN INJECTION [Suspect]
     Active Substance: CORTICOTROPIN
     Indication: MULTIPLE SCLEROSIS
     Dosage: 80 UNITS ONCE DAILY FOR 5 DAYS
     Route: 030
     Dates: start: 2015, end: 2015
  7. PROBIOTICS NOS [Concomitant]
     Active Substance: PROBIOTICS NOS
  8. EPIPEN [Concomitant]
     Active Substance: EPINEPHRINE
  9. PROMETHAZINE [Concomitant]
     Active Substance: PROMETHAZINE\PROMETHAZINE HYDROCHLORIDE
  10. MECLIZINE [Concomitant]
     Active Substance: MECLIZINE HYDROCHLORIDE
  11. FUROSEMIDE. [Concomitant]
     Active Substance: FUROSEMIDE
  12. CARBAMAZEPIN [Concomitant]
     Active Substance: CARBAMAZEPINE
  13. ENOXAPARIN [Concomitant]
     Active Substance: ENOXAPARIN
  14. POTASSIUM [Concomitant]
     Active Substance: POTASSIUM
  15. PERCOCET [Concomitant]
     Active Substance: ACETAMINOPHEN\OXYCODONE HYDROCHLORIDE
     Dosage: 10/325 PRN
  16. BACLOFEN. [Concomitant]
     Active Substance: BACLOFEN
  17. VITAMIN B12 [Concomitant]
     Active Substance: CYANOCOBALAMIN
  18. DIAZEPAM. [Concomitant]
     Active Substance: DIAZEPAM
  19. ALPRAZOLAM. [Concomitant]
     Active Substance: ALPRAZOLAM
  20. PAROXETINE. [Concomitant]
     Active Substance: PAROXETINE
  21. LEVOTHYROXINE. [Concomitant]
     Active Substance: LEVOTHYROXINE
  22. LUNESTA [Concomitant]
     Active Substance: ESZOPICLONE
  23. FLOVENT [Concomitant]
     Active Substance: FLUTICASONE PROPIONATE

REACTIONS (2)
  - Multiple sclerosis relapse [Recovered/Resolved]
  - Heart rate increased [Recovered/Resolved]

NARRATIVE: CASE EVENT DATE: 20150910
